FAERS Safety Report 5339060-2 (Version None)
Quarter: 2007Q2

REPORT INFORMATION
  Report Type: 
  Country: None (occurrence: None)
  Receive Date: 20070530
  Receipt Date: 20070518
  Transmission Date: 20071010
  Serious: Yes (Hospitalization)
  Sender: FDA-Public Use
  Company Number: DE-PFIZER INC-2007035499

PATIENT
  Sex: Male
  Weight: 92 kg

DRUGS (3)
  1. SOMAVERT [Suspect]
     Indication: ACROMEGALY
  2. JODID [Concomitant]
     Route: 048
  3. L-THYROXIN [Concomitant]
     Route: 048

REACTIONS (2)
  - EXTRAGONADAL PRIMARY MALIGNANT TERATOMA [None]
  - NEOPLASM RECURRENCE [None]
